FAERS Safety Report 9632784 (Version 2)
Quarter: 2013Q4

REPORT INFORMATION
  Report Type: Spontaneous
  Country: PT (occurrence: PT)
  Receive Date: 20131018
  Receipt Date: 20131025
  Transmission Date: 20140711
  Serious: Yes (Other)
  Sender: FDA-Public Use
  Company Number: PT-ROCHE-1289376

PATIENT
  Sex: Female

DRUGS (4)
  1. AVASTIN [Suspect]
     Indication: ADENOCARCINOMA OF COLON
     Route: 065
  2. 5-FLUOROURACIL [Suspect]
     Indication: ADENOCARCINOMA OF COLON
     Route: 065
  3. OXALIPLATIN [Suspect]
     Indication: ADENOCARCINOMA OF COLON
     Route: 065
  4. FOLINIC ACID [Suspect]
     Indication: ADENOCARCINOMA OF COLON
     Route: 065

REACTIONS (2)
  - Mouth ulceration [Unknown]
  - Oral disorder [Unknown]
